FAERS Safety Report 20232020 (Version 2)
Quarter: 2022Q1

REPORT INFORMATION
  Report Type: Report from Study
  Country: DE (occurrence: None)
  Receive Date: 20211227
  Receipt Date: 20220208
  Transmission Date: 20220423
  Serious: Yes (Hospitalization)
  Sender: FDA-Public Use
  Company Number: DE-ROCHE-2982462

PATIENT
  Age: 57 Year
  Sex: Female
  Weight: 115.5 kg

DRUGS (5)
  1. ATEZOLIZUMAB [Suspect]
     Active Substance: ATEZOLIZUMAB
     Indication: Gastric cancer
     Dosage: LAST DOSE WAS GIVEN ON 16/APR/2020
     Route: 041
  2. FLUOROURACIL [Suspect]
     Active Substance: FLUOROURACIL
     Indication: Gastric cancer
     Dosage: DOSE WAS GIVEN ON 16/APR/2020
     Route: 042
  3. OXALIPLATIN [Suspect]
     Active Substance: OXALIPLATIN
     Indication: Gastric cancer
     Dosage: ON 16/APR/2020, LAST DOSE WAS GIVEN.
     Route: 042
  4. DOCETAXEL [Suspect]
     Active Substance: DOCETAXEL
     Indication: Gastric cancer
     Dosage: LAST DOSE WAS GIVEN ON 16/APR/2020
     Route: 042
  5. LEUCOVORIN [Suspect]
     Active Substance: LEUCOVORIN
     Indication: Gastric cancer
     Dosage: LAST DOSE WAS GIVEN ON 16/APR/2020.
     Route: 042

REACTIONS (2)
  - Gastrointestinal anastomotic leak [Recovered/Resolved]
  - Gastrointestinal anastomotic leak [Recovered/Resolved]

NARRATIVE: CASE EVENT DATE: 20200601
